FAERS Safety Report 9029260 (Version 1)
Quarter: 2013Q1

REPORT INFORMATION
  Report Type: Spontaneous
  Country: FR (occurrence: FR)
  Receive Date: 20130125
  Receipt Date: 20130125
  Transmission Date: 20140127
  Serious: Yes (Hospitalization)
  Sender: FDA-Public Use
  Company Number: FR-BAYER-2013-008655

PATIENT
  Age: 55 Year
  Sex: Male

DRUGS (15)
  1. CIFLOX [Suspect]
     Dosage: UNK
     Dates: start: 20120227
  2. TAZOCILLINE [Suspect]
     Dosage: UNK
     Dates: start: 20120227
  3. TRIFLUCAN [Suspect]
     Dosage: UNK
     Dates: start: 20120307
  4. TIENAM [Suspect]
     Dosage: UNK
     Dates: start: 20120307
  5. AMIKLIN [Suspect]
     Dosage: UNK
     Dates: start: 20120307
  6. ZYVOXID [Suspect]
     Dosage: UNK
     Dates: start: 20120307
  7. VANCOMYCIN [Suspect]
     Dosage: UNK
     Dates: start: 20120316, end: 20120331
  8. VANCOMYCIN [Suspect]
     Dosage: UNK
     Dates: start: 20120406, end: 20120428
  9. GENTAMICIN [Suspect]
     Dosage: UNK
     Dates: start: 20120316
  10. COLIMYCINE [Suspect]
     Dosage: UNK
     Dates: start: 20120316
  11. COLIMYCINE [Suspect]
     Dosage: UNK
     Dates: start: 20120406, end: 20120428
  12. CANCIDAS [Suspect]
  13. MEROPENEM [Suspect]
     Dosage: UNK
     Dates: start: 20120406, end: 20120428
  14. RIFADINE [Suspect]
     Dosage: UNK
     Dates: start: 20120406, end: 20120428
  15. AXEPIM [Suspect]

REACTIONS (1)
  - Acquired haemophilia [Unknown]
